FAERS Safety Report 21680796 (Version 4)
Quarter: 2023Q4

REPORT INFORMATION
  Report Type: Report from Study
  Country: CA (occurrence: CA)
  Receive Date: 20221205
  Receipt Date: 20231214
  Transmission Date: 20240109
  Serious: Yes (Other)
  Sender: FDA-Public Use
  Company Number: CA-002147023-NVSC2022CA280314

PATIENT
  Age: 30 Year
  Sex: Female

DRUGS (6)
  1. ELTROMBOPAG OLAMINE [Suspect]
     Active Substance: ELTROMBOPAG OLAMINE
     Indication: Immune thrombocytopenia
     Dosage: 50 MG, QD
     Route: 048
     Dates: start: 20221125
  2. ELTROMBOPAG OLAMINE [Suspect]
     Active Substance: ELTROMBOPAG OLAMINE
     Dosage: 50 MG (EVERY OTHER DAY)
     Route: 065
  3. ELTROMBOPAG OLAMINE [Suspect]
     Active Substance: ELTROMBOPAG OLAMINE
     Dosage: 25 MG (OEVERY SECOND DAY)
     Route: 048
  4. ELTROMBOPAG OLAMINE [Suspect]
     Active Substance: ELTROMBOPAG OLAMINE
     Dosage: 25 MG, QD
     Route: 065
     Dates: start: 20230303
  5. ELTROMBOPAG OLAMINE [Suspect]
     Active Substance: ELTROMBOPAG OLAMINE
     Dosage: 50 MG
     Route: 065
     Dates: start: 20231028, end: 20231029
  6. ELTROMBOPAG OLAMINE [Suspect]
     Active Substance: ELTROMBOPAG OLAMINE
     Dosage: 25 MG, QD
     Route: 065
     Dates: start: 20231030

REACTIONS (10)
  - Haemorrhage [Unknown]
  - Arthralgia [Unknown]
  - Conjunctivitis [Not Recovered/Not Resolved]
  - Platelet count decreased [Unknown]
  - Nasopharyngitis [Not Recovered/Not Resolved]
  - Nausea [Unknown]
  - Rash [Unknown]
  - Platelet count increased [Recovering/Resolving]
  - Influenza [Unknown]
  - Vision blurred [Unknown]

NARRATIVE: CASE EVENT DATE: 20221101
